FAERS Safety Report 4712962-3 (Version None)
Quarter: 2005Q3

REPORT INFORMATION
  Report Type: 
  Country: None (occurrence: None)
  Receive Date: 20050711
  Receipt Date: 20050630
  Transmission Date: 20060218
  Serious: Yes (Life-Threatening, Hospitalization)
  Sender: FDA-Public Use
  Company Number: MK200507-0050-1

PATIENT
  Age: 40 Year
  Sex: Male

DRUGS (1)
  1. SODIUM IODIDE I 131 SOLUTION [Suspect]
     Indication: PAPILLARY THYROID CANCER
     Dosage: 390 MCI, 3 DOSES, PO
     Route: 048
     Dates: start: 19860901, end: 19910901

REACTIONS (1)
  - CHRONIC MYELOID LEUKAEMIA [None]
